FAERS Safety Report 24456491 (Version 2)
Quarter: 2024Q4

REPORT INFORMATION
  Report Type: Report from Study
  Country: US (occurrence: US)
  Receive Date: 20241017
  Receipt Date: 20241018
  Transmission Date: 20250114
  Serious: No
  Sender: ROCHE
  Company Number: US-ROCHE-3505203

PATIENT
  Age: 75 Year
  Sex: Female
  Weight: 54.43 kg

DRUGS (21)
  1. RITUXAN [Suspect]
     Active Substance: RITUXIMAB
     Indication: Rheumatoid arthritis
     Dosage: 1000 MG X 2 EVERY 6 MONTH (DOSE OF 50MG EVERY 30 MINUTES TO MAXIMUM OF 400 MG AN HOUR)?THE LAST TREA
     Route: 041
  2. RITUXAN [Suspect]
     Active Substance: RITUXIMAB
     Indication: Rheumatoid arthritis
     Dosage: (DOSE OF 50MG EVERY 30 MINUTES TO MAXIMUM OF 400 MG AN HOUR)
     Route: 041
     Dates: start: 20190304
  3. ACTEMRA [Suspect]
     Active Substance: TOCILIZUMAB
     Indication: Rheumatoid arthritis
     Dosage: DOSE OF 100 CC AND HOUR FOR 60 MINUTES. (DOSE OF ACTEMRA WAS ON 13/JUL/2018)
     Route: 042
     Dates: start: 20171201
  4. ALBUTEROL SULFATE [Concomitant]
     Active Substance: ALBUTEROL SULFATE
  5. AMLODIPINE [Concomitant]
     Active Substance: AMLODIPINE BESYLATE
     Route: 048
  6. ASTELIN [Concomitant]
     Active Substance: AZELASTINE HYDROCHLORIDE
  7. AZITHROMYCIN [Concomitant]
     Active Substance: AZITHROMYCIN
  8. CIPROFLOXACIN [Concomitant]
     Active Substance: CIPROFLOXACIN
  9. ADOXA [Concomitant]
     Active Substance: DOXYCYCLINE
  10. DULERA [Concomitant]
     Active Substance: FORMOTEROL FUMARATE DIHYDRATE\MOMETASONE FUROATE
  11. CLIMARA [Concomitant]
     Active Substance: ESTRADIOL
  12. ALLEGRA [Concomitant]
     Active Substance: FEXOFENADINE HYDROCHLORIDE
  13. FLONASE [Concomitant]
     Active Substance: FLUTICASONE PROPIONATE
  14. ATROVENT [Concomitant]
     Active Substance: IPRATROPIUM BROMIDE
  15. DUONEB [Concomitant]
     Active Substance: ALBUTEROL SULFATE\IPRATROPIUM BROMIDE
  16. COZAAR [Concomitant]
     Active Substance: LOSARTAN POTASSIUM
  17. METHOTREXATE [Concomitant]
     Active Substance: METHOTREXATE
  18. PROTONIX [Concomitant]
     Active Substance: PANTOPRAZOLE SODIUM
  19. SYSTANE (HYPROMELLOSE 2910 (4000 MPA.S)) [Concomitant]
     Active Substance: HYPROMELLOSE 2910 (4000 MPA.S)
  20. LEUCOVORIN [Concomitant]
     Active Substance: LEUCOVORIN\LEUCOVORIN CALCIUM
  21. AIRDUO RESPICLICK [Concomitant]
     Active Substance: FLUTICASONE PROPIONATE\SALMETEROL XINAFOATE
     Dosage: INHALE 1 PUFF

REACTIONS (6)
  - Off label use [Unknown]
  - Dizziness [Recovered/Resolved]
  - Hypertension [Unknown]
  - Alopecia [Unknown]
  - Drug hypersensitivity [Unknown]
  - Rash [Recovered/Resolved]

NARRATIVE: CASE EVENT DATE: 20180713
